FAERS Safety Report 10362087 (Version 1)
Quarter: 2014Q1

REPORT INFORMATION
  Report Type: Spontaneous
  Country: US (occurrence: None)
  Receive Date: 20140306
  Receipt Date: 20140306
  Transmission Date: 20141002
  Serious: Yes (Other)
  Sender: FDA-Public Use
  Company Number: 163-21880-13083651

PATIENT
  Age: 54 Year
  Sex: Female
  Weight: 40.82 kg

DRUGS (4)
  1. REVLIMID(LENALIDOMIDE) (15 MILLIGRAM, CAPSULES) [Suspect]
     Indication: PLASMA CELL MYELOMA
     Route: 048
     Dates: start: 201003
  2. POTASSIUM GLUCONATE(POTASSIUM GLUCONATE)(UNKNOWN) [Concomitant]
  3. PERCOCET(OXYCOCET)(UNKNOWN) [Concomitant]
  4. OXYCONTIN(OXYCODONE HYDROCHLORIDE) (TABLETS) [Concomitant]

REACTIONS (2)
  - Haemoglobin decreased [None]
  - White blood cell count decreased [None]
